FAERS Safety Report 16716001 (Version 14)
Quarter: 2020Q2

REPORT INFORMATION
  Report Type: Spontaneous
  Country: US (occurrence: US)
  Receive Date: 20190819
  Receipt Date: 20200508
  Transmission Date: 20200713
  Serious: No
  Sender: FDA-Public Use
  Company Number: US-PFIZER INC-2019354552

PATIENT
  Age: 51 Year
  Sex: Female
  Weight: 58 kg

DRUGS (7)
  1. LYRICA [Suspect]
     Active Substance: PREGABALIN
     Indication: PAIN
     Dosage: 2 CAPSULES, 4X/DAY (EVERY 6 HOURS)
  2. LYRICA [Suspect]
     Active Substance: PREGABALIN
     Indication: NEURALGIA
     Dosage: 100 MG, 3X/DAY
     Route: 048
  3. LYRICA [Suspect]
     Active Substance: PREGABALIN
     Indication: GINGIVAL PAIN
     Dosage: 100 MG, 4X/DAY (EVERY 6 HOURS)
     Route: 048
  4. LYRICA [Suspect]
     Active Substance: PREGABALIN
     Dosage: 200 MG, 4X/DAY (EVERY 6 HOURS)
  5. LYRICA [Suspect]
     Active Substance: PREGABALIN
     Dosage: 100 MG, UNK
  6. LYRICA [Suspect]
     Active Substance: PREGABALIN
     Dosage: 200 MG, 3X/DAY (2 100 MG CAPSULES)
     Route: 048
  7. LYRICA [Suspect]
     Active Substance: PREGABALIN
     Indication: NERVE INJURY
     Dosage: 100 MG, 1X/DAY

REACTIONS (20)
  - Intentional product use issue [Unknown]
  - Intentional product misuse [Unknown]
  - Nasopharyngitis [Unknown]
  - Procedural pain [Unknown]
  - Influenza [Recovering/Resolving]
  - Gingival disorder [Unknown]
  - Crying [Unknown]
  - Asthenia [Unknown]
  - Malaise [Unknown]
  - Anxiety [Unknown]
  - Frustration tolerance decreased [Unknown]
  - Drug ineffective [Unknown]
  - Anger [Unknown]
  - Decreased immune responsiveness [Unknown]
  - Product dispensing error [Unknown]
  - Product colour issue [Unknown]
  - Panic attack [Unknown]
  - Feeling abnormal [Unknown]
  - Somnolence [Unknown]
  - Weight decreased [Unknown]

NARRATIVE: CASE EVENT DATE: 20191005
